FAERS Safety Report 7375867-8 (Version None)
Quarter: 2011Q1

REPORT INFORMATION
  Report Type: 
  Country: None (occurrence: None)
  Receive Date: 20110325
  Receipt Date: 20110317
  Transmission Date: 20110831
  Serious: Yes (Other)
  Sender: FDA-Public Use
  Company Number: A0919705A

PATIENT
  Sex: Male
  Weight: 4.5 kg

DRUGS (4)
  1. AD-TIL [Concomitant]
     Dosage: 2DROP PER DAY
     Route: 065
     Dates: start: 20110222
  2. SIMETHICONE [Concomitant]
     Dosage: 4DROP FOUR TIMES PER DAY
     Route: 065
     Dates: start: 20110313, end: 20110317
  3. AMOXIL [Suspect]
     Dosage: 100MG TWICE PER DAY
     Route: 065
     Dates: start: 20110309
  4. ACETAMINOPHEN [Concomitant]
     Dosage: 4DROP FOUR TIMES PER DAY
     Route: 065
     Dates: start: 20110308, end: 20110317

REACTIONS (3)
  - ILL-DEFINED DISORDER [None]
  - NASAL CONGESTION [None]
  - CHOKING [None]
